FAERS Safety Report 19761628 (Version 1)
Quarter: 2021Q3

REPORT INFORMATION
  Report Type: Spontaneous
  Country: US (occurrence: US)
  Receive Date: 20210827
  Receipt Date: 20210827
  Transmission Date: 20211014
  Serious: No
  Sender: FDA-Public Use
  Company Number: US-ANIPHARMA-2021-US-002081

PATIENT
  Sex: 0

DRUGS (5)
  1. FASLODEX [Suspect]
     Active Substance: FULVESTRANT
     Route: 065
  2. LETROZOLE. [Suspect]
     Active Substance: LETROZOLE
     Route: 065
  3. IBRANCE [Suspect]
     Active Substance: PALBOCICLIB
     Dosage: 75 MG DAILY
     Route: 048
     Dates: start: 20200106
  4. ANASTROZOLE. [Suspect]
     Active Substance: ANASTROZOLE
     Indication: PRODUCT USED FOR UNKNOWN INDICATION
     Route: 065
  5. HYDROCHLOROTHIAZIDE. [Suspect]
     Active Substance: HYDROCHLOROTHIAZIDE
     Route: 065

REACTIONS (8)
  - Myalgia [Unknown]
  - Blood sodium decreased [Unknown]
  - Breast pain [Unknown]
  - Blood potassium decreased [Unknown]
  - Blood pressure increased [Unknown]
  - Rash pruritic [Not Recovered/Not Resolved]
  - Rhinorrhoea [Unknown]
  - Rash [Not Recovered/Not Resolved]
